FAERS Safety Report 4484467-9 (Version None)
Quarter: 2004Q3

REPORT INFORMATION
  Report Type: 
  Country: None (occurrence: None)
  Receive Date: 20040921
  Receipt Date: 20040114
  Transmission Date: 20050211
  Serious: Yes (Hospitalization)
  Sender: FDA-Public Use
  Company Number: 163-20785-04010353

PATIENT
  Age: 72 Year
  Sex: Male
  Weight: 82.6 kg

DRUGS (9)
  1. THALOMID [Suspect]
     Indication: NON-SMALL CELL LUNG CANCER
     Dosage: 50 MG, QHS, ORAL
     Route: 048
     Dates: start: 20040107, end: 20040113
  2. VINORELBINE (VINORELBINE) [Suspect]
     Indication: NON-SMALL CELL LUNG CANCER
     Dosage: 5MG/M2, EVERY M-W-F
     Dates: start: 20040107, end: 20040112
  3. HYDROCHLOROTHIAZIDE [Concomitant]
  4. PROTONIX [Concomitant]
  5. DULCOLAX(BISACODYL) (TABLETS) [Concomitant]
  6. TOPAMAX [Concomitant]
  7. COZAAR [Concomitant]
  8. IRON (IRON) [Concomitant]
  9. INSULIN HUMULIN 70/30 (HUMAN MIXTARD) [Concomitant]

REACTIONS (2)
  - DYSPNOEA [None]
  - PULMONARY EMBOLISM [None]
